FAERS Safety Report 8554074-7 (Version None)
Quarter: 2012Q3

REPORT INFORMATION
  Report Type: 
  Country: None (occurrence: None)
  Receive Date: 20120731
  Receipt Date: 20120720
  Transmission Date: 20120928
  Serious: Yes (Death, Hospitalization)
  Sender: FDA-Public Use
  Company Number: BR-BRISTOL-MYERS SQUIBB COMPANY-16789547

PATIENT
  Age: 62 Year
  Sex: Male
  Weight: 60 kg

DRUGS (10)
  1. LACTULOSE [Concomitant]
     Dates: start: 20120525
  2. CISPLATIN [Suspect]
     Indication: NON-SMALL CELL LUNG CANCER
     Dosage: LAST DOSE:03JUL2012
     Route: 042
     Dates: start: 20120503
  3. PEMETREXED DISODIUM [Suspect]
     Indication: NON-SMALL CELL LUNG CANCER
     Route: 042
     Dates: start: 20120503
  4. DEXAMETHASONE [Concomitant]
     Dates: start: 20120503
  5. FOLIC ACID [Concomitant]
     Dates: start: 20120426, end: 20120711
  6. ACETAMINOPHEN [Concomitant]
     Dates: start: 20120503
  7. VITAMIN B-12 [Concomitant]
     Dates: start: 20120426
  8. AMIODARONE HCL [Concomitant]
     Dates: start: 20120101
  9. OMEPRAZOLE [Concomitant]
     Dates: start: 20120201
  10. PREDNISONE [Concomitant]
     Dates: start: 20120618

REACTIONS (3)
  - ACUTE RESPIRATORY FAILURE [None]
  - FEBRILE NEUTROPENIA [None]
  - SHOCK [None]
